FAERS Safety Report 5074715-9 (Version None)
Quarter: 2006Q3

REPORT INFORMATION
  Report Type: 
  Country: None (occurrence: None)
  Receive Date: 20060807
  Receipt Date: 20060726
  Transmission Date: 20061208
  Serious: Yes (Other)
  Sender: FDA-Public Use
  Company Number: 2006092512

PATIENT
  Age: 27 Year
  Sex: Male

DRUGS (2)
  1. GEODON [Suspect]
     Indication: BIPOLAR DISORDER
     Dosage: (1 IN 1 D), ORAL
     Route: 048
     Dates: start: 20060101
  2. TRILEPTAL [Concomitant]

REACTIONS (4)
  - BIPOLAR DISORDER [None]
  - CONDITION AGGRAVATED [None]
  - FATIGUE [None]
  - SOMNOLENCE [None]
